FAERS Safety Report 8201119-X (Version None)
Quarter: 2012Q1

REPORT INFORMATION
  Report Type: 
  Country: None (occurrence: None)
  Receive Date: 20120312
  Receipt Date: 20120305
  Transmission Date: 20120608
  Serious: Yes (Other)
  Sender: FDA-Public Use
  Company Number: FR-JNJFOC-20120202024

PATIENT
  Sex: Male
  Weight: 83 kg

DRUGS (6)
  1. PREZISTA [Suspect]
     Route: 048
     Dates: start: 20120130
  2. NORVIR [Suspect]
     Route: 048
     Dates: start: 20120130
  3. TRUVADA [Suspect]
     Indication: HIV INFECTION
     Dosage: 200MG/245MG
     Route: 048
     Dates: start: 20120120
  4. TRUVADA [Suspect]
     Dosage: 200MG/245MG
     Route: 048
     Dates: start: 20120130
  5. PREZISTA [Suspect]
     Indication: HIV INFECTION
     Route: 048
     Dates: start: 20120120
  6. NORVIR [Suspect]
     Indication: HIV INFECTION
     Route: 048
     Dates: start: 20120120

REACTIONS (3)
  - PRURITUS [None]
  - EOSINOPHIL COUNT INCREASED [None]
  - RASH MACULO-PAPULAR [None]
